FAERS Safety Report 25722224 (Version 2)
Quarter: 2025Q4

REPORT INFORMATION
  Report Type: Report from Study
  Country: US (occurrence: US)
  Receive Date: 20250825
  Receipt Date: 20251007
  Transmission Date: 20260117
  Serious: Yes (Hospitalization, Other)
  Sender: OTSUKA
  Company Number: US-MMM-Otsuka-CZSDH5VT

PATIENT
  Age: 42 Year
  Sex: Female
  Weight: 111.2 kg

DRUGS (3)
  1. TOLVAPTAN [Suspect]
     Active Substance: TOLVAPTAN
     Indication: Congenital cystic kidney disease
     Dosage: UNK
     Route: 065
  2. TOLVAPTAN [Suspect]
     Active Substance: TOLVAPTAN
     Dosage: UNK (RESUMED)
     Route: 065
  3. SOMATOSTATIN [Concomitant]
     Active Substance: SOMATOSTATIN
     Indication: Polycystic liver disease
     Dosage: UNK
     Route: 065

REACTIONS (2)
  - Hysterectomy [Recovered/Resolved]
  - Adenomyosis [Unknown]

NARRATIVE: CASE EVENT DATE: 20250811
